FAERS Safety Report 15377923 (Version 1)
Quarter: 2018Q4

REPORT INFORMATION
  Report Type: Spontaneous
  Country: JP (occurrence: JP)
  Receive Date: 20180913
  Receipt Date: 20180913
  Transmission Date: 20190204
  Serious: Yes (Hospitalization, Other)
  Sender: FDA-Public Use
  Company Number: JP-ASPEN-JPG2018JP008677

PATIENT

DRUGS (2)
  1. DEXAMETHASONE. [Suspect]
     Active Substance: DEXAMETHASONE
     Indication: TENDONITIS
     Dosage: 1.65 MG
     Route: 065
     Dates: start: 20180831
  2. LIDOCAINE (BASE) [Suspect]
     Active Substance: LIDOCAINE
     Indication: TENDONITIS
     Dosage: UNK
     Route: 065
     Dates: start: 20180831

REACTIONS (6)
  - Hyperhidrosis [Unknown]
  - Fall [Unknown]
  - Yawning [Unknown]
  - Dry mouth [Unknown]
  - Nausea [Unknown]
  - Decreased appetite [Not Recovered/Not Resolved]

NARRATIVE: CASE EVENT DATE: 20180831
